FAERS Safety Report 6614415-4 (Version None)
Quarter: 2010Q1

REPORT INFORMATION
  Report Type: 
  Country: None (occurrence: None)
  Receive Date: 20100304
  Receipt Date: 20100226
  Transmission Date: 20100710
  Serious: Yes (Other)
  Sender: FDA-Public Use
  Company Number: BR-ABBOTT-10P-020-0628915-00

PATIENT
  Sex: Female
  Weight: 75 kg

DRUGS (6)
  1. HUMIRA [Suspect]
     Indication: RHEUMATOID ARTHRITIS
     Route: 058
     Dates: start: 20090201
  2. CLIMENE [Concomitant]
     Indication: HORMONE REPLACEMENT THERAPY
     Route: 048
     Dates: start: 20090801
  3. OXYCONTIN [Concomitant]
     Indication: ARTHRALGIA
     Route: 048
     Dates: start: 20090801
  4. MELOXICAM [Concomitant]
     Indication: RHEUMATOID ARTHRITIS
     Route: 048
     Dates: start: 20090801
  5. PREDNISONE [Concomitant]
     Indication: RHEUMATOID ARTHRITIS
     Dosage: 5 MILLIGRAMS 1 OR 2 PER DAY
     Route: 048
     Dates: start: 19870101
  6. FLUOXETINE HCL [Concomitant]
     Indication: NERVOUSNESS
     Route: 048
     Dates: start: 20080101

REACTIONS (4)
  - ARTHRALGIA [None]
  - ARTHRITIS [None]
  - GAIT DISTURBANCE [None]
  - MEDICAL DEVICE COMPLICATION [None]
